FAERS Safety Report 10763054 (Version 1)
Quarter: 2015Q1

REPORT INFORMATION
  Report Type: Spontaneous
  Country: US (occurrence: None)
  Receive Date: 20150128
  Receipt Date: 20150128
  Transmission Date: 20150721
  Serious: Yes (Other)
  Sender: FDA-Public Use
  Company Number: 1351825

PATIENT
  Sex: Male

DRUGS (1)
  1. RITUXIMAB  (RITUXIMAB) [Suspect]
     Active Substance: RITUXIMAB
     Indication: NON-HODGKIN^S LYMPHOMA
     Dosage: 1 IN 6 M

REACTIONS (1)
  - JC virus granule cell neuronopathy [None]
